FAERS Safety Report 6415341-6 (Version None)
Quarter: 2009Q4

REPORT INFORMATION
  Report Type: 
  Country: None (occurrence: None)
  Receive Date: 20091027
  Receipt Date: 20091022
  Transmission Date: 20100525
  Serious: Yes (Life-Threatening, Hospitalization)
  Sender: FDA-Public Use
  Company Number: PHHY2009BE46053

PATIENT

DRUGS (1)
  1. RASILEZ [Suspect]

REACTIONS (2)
  - DIARRHOEA [None]
  - RENAL FAILURE [None]
